FAERS Safety Report 8058021-6 (Version None)
Quarter: 2012Q1

REPORT INFORMATION
  Report Type: 
  Country: None (occurrence: None)
  Receive Date: 20120120
  Receipt Date: 20120111
  Transmission Date: 20120608
  Serious: Yes (Hospitalization)
  Sender: FDA-Public Use
  Company Number: US-PAR PHARMACEUTICAL, INC-2011SCPR003489

PATIENT

DRUGS (4)
  1. IBUPROFEN (ADVIL) [Suspect]
     Indication: PRODUCT USED FOR UNKNOWN INDICATION
     Dosage: 6 DF, UNK
     Route: 048
  2. IBUPROFEN [Suspect]
     Indication: PRODUCT USED FOR UNKNOWN INDICATION
     Dosage: UNK UNK, UNKNOWN
     Route: 048
  3. ACETAMINOPHEN [Suspect]
     Indication: PRODUCT USED FOR UNKNOWN INDICATION
     Dosage: 12 DF, UNKNOWN
     Route: 048
  4. MIDOL COMPLETE CAPLETS [Suspect]
     Indication: PRODUCT USED FOR UNKNOWN INDICATION
     Dosage: 30 TABLETS (MEPYRAMINE 15MG, CAFFEINE 60MG AND PARACETAMOL 500MG)
     Route: 048

REACTIONS (10)
  - CHILLS [None]
  - DEPRESSED MOOD [None]
  - ELECTROCARDIOGRAM QT PROLONGED [None]
  - BLOOD GLUCOSE INCREASED [None]
  - MULTIPLE DRUG OVERDOSE [None]
  - BLOOD LACTIC ACID INCREASED [None]
  - SUICIDE ATTEMPT [None]
  - ANXIETY [None]
  - PALPITATIONS [None]
  - BASE EXCESS [None]
